FAERS Safety Report 12105824 (Version 1)
Quarter: 2016Q1

REPORT INFORMATION
  Report Type: Spontaneous
  Country: None (occurrence: None)
  Receive Date: 20160222
  Receipt Date: 20160222
  Transmission Date: 20160526
  Serious: Yes (Death)
  Sender: FDA-Public Use
  Company Number: None

PATIENT
  Age: 57 Day

DRUGS (1)
  1. MACROBID [Suspect]
     Active Substance: NITROFURANTOIN\NITROFURANTOIN MONOHYDRATE
     Indication: URINARY TRACT INFECTION
     Route: 048

REACTIONS (7)
  - Diarrhoea [None]
  - Nausea [None]
  - Haemolytic anaemia [None]
  - Headache [None]
  - Tongue disorder [None]
  - Myocardial infarction [None]
  - Anaphylactoid reaction [None]
